FAERS Safety Report 15125515 (Version 7)
Quarter: 2022Q4

REPORT INFORMATION
  Report Type: Report from Study
  Country: CN (occurrence: None)
  Receive Date: 20180710
  Receipt Date: 20221007
  Transmission Date: 20230113
  Serious: Yes (Hospitalization)
  Sender: FDA-Public Use
  Company Number: CN-ROCHE-2149937

PATIENT
  Age: 53 Year
  Sex: Female
  Weight: 51.8 kg

DRUGS (31)
  1. ATEZOLIZUMAB [Suspect]
     Active Substance: ATEZOLIZUMAB
     Indication: Transitional cell carcinoma metastatic
     Dosage: DATE OF MOST RECENT DOSE OF MONOTHERAPY ATEZOLIZUMAB PRIOR TO AE ONSET: 12/JUN/2018
     Route: 042
     Dates: start: 20180612
  2. CEFOPERAZONE SODIUM\SULBACTAM SODIUM [Concomitant]
     Active Substance: CEFOPERAZONE SODIUM\SULBACTAM SODIUM
     Route: 050
     Dates: start: 20180626, end: 20180626
  3. OMEPRAZOLE SODIUM [Concomitant]
     Active Substance: OMEPRAZOLE SODIUM
     Route: 042
     Dates: start: 20180627, end: 20180727
  4. OMEPRAZOLE SODIUM [Concomitant]
     Active Substance: OMEPRAZOLE SODIUM
     Route: 042
     Dates: start: 20180624, end: 20180624
  5. REBAMIPIDE [Concomitant]
     Active Substance: REBAMIPIDE
     Route: 048
     Dates: start: 20180628, end: 20180628
  6. FLUNARIZINE [Concomitant]
     Active Substance: FLUNARIZINE
     Route: 048
     Dates: start: 20180628, end: 20180628
  7. FLUNARIZINE [Concomitant]
     Active Substance: FLUNARIZINE
     Route: 048
     Dates: start: 20180627, end: 20180627
  8. FERRIC POLYSACCHARIDE COMPLEX [Concomitant]
     Active Substance: FERRIC POLYSACCHARIDE COMPLEX
     Route: 048
     Dates: start: 20180630, end: 20180630
  9. POTASSIUM CHLORIDE [Concomitant]
     Active Substance: POTASSIUM CHLORIDE
     Route: 048
     Dates: start: 20180701, end: 20180701
  10. IBUPROFEN [Concomitant]
     Active Substance: IBUPROFEN
     Route: 048
     Dates: start: 20180624, end: 20180625
  11. INDOMETHACIN [Concomitant]
     Active Substance: INDOMETHACIN
     Route: 054
     Dates: start: 20180624, end: 20180625
  12. INDOMETHACIN [Concomitant]
     Active Substance: INDOMETHACIN
     Route: 054
     Dates: start: 20180626, end: 20180626
  13. INDOMETHACIN [Concomitant]
     Active Substance: INDOMETHACIN
     Route: 054
     Dates: start: 20180627, end: 20180629
  14. INDOMETHACIN [Concomitant]
     Active Substance: INDOMETHACIN
     Route: 054
     Dates: start: 20180701, end: 20180701
  15. GLYCERIN [Concomitant]
     Active Substance: GLYCERIN
     Dosage: ENEMA OHTA
     Route: 054
     Dates: start: 20180629, end: 20180629
  16. ETOMIDATE [Concomitant]
     Active Substance: ETOMIDATE
     Indication: Product used for unknown indication
     Dosage: FAT EMULSION?UNKNOWN
     Route: 065
     Dates: start: 201809, end: 201809
  17. DIPRIVAN [Concomitant]
     Active Substance: PROPOFOL
     Indication: Product used for unknown indication
     Dosage: UNKNOWN
     Route: 065
     Dates: start: 201809, end: 201809
  18. EBASTINE [Concomitant]
     Active Substance: EBASTINE
     Indication: Product used for unknown indication
     Dosage: UNKNOWN
     Route: 065
     Dates: start: 201809, end: 201809
  19. VITAMIN C [Concomitant]
     Active Substance: ASCORBIC ACID
     Indication: Product used for unknown indication
     Dosage: UNKNOWN
     Route: 065
     Dates: start: 201809, end: 201809
  20. VITAMIN B6 [Concomitant]
     Active Substance: PYRIDOXINE HYDROCHLORIDE
     Indication: Product used for unknown indication
     Dosage: UNKNOWN
     Route: 065
     Dates: start: 201809, end: 201809
  21. ALANYL GLUTAMINE [Concomitant]
     Active Substance: ALANYL GLUTAMINE
     Indication: Product used for unknown indication
     Dosage: UNKNOWN
     Route: 065
     Dates: start: 201809, end: 201809
  22. EGG PHOSPHOLIPIDS\GLYCERIN\SOYBEAN OIL [Concomitant]
     Active Substance: EGG PHOSPHOLIPIDS\GLYCERIN\SOYBEAN OIL
     Indication: Product used for unknown indication
     Dosage: UNKNOWN
     Route: 065
     Dates: start: 201809, end: 201809
  23. PANTOPRAZOLE [Concomitant]
     Active Substance: PANTOPRAZOLE
     Indication: Product used for unknown indication
     Dosage: UNKNOWN
     Route: 065
     Dates: start: 201809, end: 201809
  24. IOHEXOL [Concomitant]
     Active Substance: IOHEXOL
     Indication: Product used for unknown indication
     Route: 065
     Dates: start: 201809, end: 201809
  25. OMEPRAZOLE [Concomitant]
     Active Substance: OMEPRAZOLE
     Indication: Product used for unknown indication
     Dosage: ENTERIC-COATED CAPSULES?UNKNOWN
     Route: 065
     Dates: start: 201809, end: 201809
  26. INDOMETHACIN [Concomitant]
     Active Substance: INDOMETHACIN
     Indication: Product used for unknown indication
     Dosage: UNKNOWN
     Route: 065
     Dates: start: 201809, end: 201809
  27. PROMETHAZINE HYDROCHLORIDE [Concomitant]
     Active Substance: PROMETHAZINE HYDROCHLORIDE
     Indication: Product used for unknown indication
     Dosage: UNKNOWN
     Route: 065
     Dates: start: 201809, end: 201809
  28. DYNASTAT [Concomitant]
     Active Substance: PARECOXIB SODIUM
     Indication: Product used for unknown indication
     Dosage: UNKNOWN
     Route: 065
     Dates: start: 201809, end: 201809
  29. SHENG XUE BAO HE JI [Concomitant]
     Route: 048
     Dates: start: 20180628, end: 20180628
  30. ACETAMINOPHEN\OXYCODONE HYDROCHLORIDE [Concomitant]
     Active Substance: ACETAMINOPHEN\OXYCODONE HYDROCHLORIDE
     Route: 048
     Dates: start: 20180508
  31. CEFTRIAXONE SODIUM [Concomitant]
     Active Substance: CEFTRIAXONE SODIUM
     Route: 050
     Dates: start: 20180624, end: 20180626

REACTIONS (1)
  - Tumour associated fever [Recovered/Resolved]

NARRATIVE: CASE EVENT DATE: 20180622
